FAERS Safety Report 15486820 (Version 1)
Quarter: 2018Q4

REPORT INFORMATION
  Report Type: Spontaneous
  Country: US (occurrence: US)
  Receive Date: 20181011
  Receipt Date: 20181011
  Transmission Date: 20190205
  Serious: No
  Sender: FDA-Public Use
  Company Number: US-ACLARIS THERAPEUTICS-2018US006801

PATIENT
  Age: 92 Year
  Sex: Male

DRUGS (2)
  1. ESKATA [Suspect]
     Active Substance: HYDROGEN PEROXIDE
     Indication: SOLAR LENTIGO
     Dosage: UNK
     Route: 061
  2. ESKATA [Suspect]
     Active Substance: HYDROGEN PEROXIDE
     Dosage: UNK
     Route: 061
     Dates: start: 20180625

REACTIONS (2)
  - Erythema of eyelid [Recovering/Resolving]
  - Swelling of eyelid [Recovering/Resolving]

NARRATIVE: CASE EVENT DATE: 20180625
